FAERS Safety Report 9007968 (Version 4)
Quarter: 2013Q1

REPORT INFORMATION
  Report Type: Report from Study
  Country: FR (occurrence: FR)
  Receive Date: 20130111
  Receipt Date: 20130327
  Transmission Date: 20140127
  Serious: Yes (Death)
  Sender: FDA-Public Use
  Company Number: FR-GENZYME-CAMP-1002668

PATIENT
  Sex: Male

DRUGS (1)
  1. CAMPATH [Suspect]
     Indication: CHRONIC LYMPHOCYTIC LEUKAEMIA REFRACTORY
     Dosage: 30 MG, 1X/W (3 WEEKS)
     Route: 058
     Dates: end: 20120924

REACTIONS (1)
  - Chronic lymphocytic leukaemia [Fatal]
